FAERS Safety Report 25151470 (Version 2)
Quarter: 2025Q3

REPORT INFORMATION
  Report Type: Spontaneous
  Country: EU (occurrence: EU)
  Receive Date: 20250402
  Receipt Date: 20250731
  Transmission Date: 20251021
  Serious: Yes (Hospitalization, Other)
  Sender: Kenvue
  Company Number: EU-NALPROPION PHARMACEUTICALS INC.-PL-2023CUR004274

PATIENT

DRUGS (13)
  1. ACETAMINOPHEN [Interacting]
     Active Substance: ACETAMINOPHEN
     Indication: Headache
     Dosage: 1000 MG, QID
     Route: 048
  2. ACETAMINOPHEN [Interacting]
     Active Substance: ACETAMINOPHEN
     Indication: Analgesic therapy
  3. BUPROPION HYDROCHLORIDE\NALTREXONE HYDROCHLORIDE [Interacting]
     Active Substance: BUPROPION HYDROCHLORIDE\NALTREXONE HYDROCHLORIDE
     Indication: Obesity
     Dosage: 1 DOSAGE FORM, ONCE A DAY, STRENGTH 8/90, 1 TABLET, ONCE A DAY (FOR 2 WEEKS), MYSIMBA (NALTREXONE HC
     Route: 065
  4. BUPROPION HYDROCHLORIDE\NALTREXONE HYDROCHLORIDE [Interacting]
     Active Substance: BUPROPION HYDROCHLORIDE\NALTREXONE HYDROCHLORIDE
     Dosage: 4 DOSAGE FORM, ONCE A DAY, STRENGTH 8/90, 2 TABLETS, TWICE DAILY
     Route: 065
  5. OZEMPIC [Interacting]
     Active Substance: SEMAGLUTIDE
     Indication: Obesity
     Dosage: 0.25 MILLIGRAM, ONCE IN A WEEK, 0.25 MILLIGRAM, ONCE IN A WEEK, 0.25 MG, WEEKLY (FOR THE FIRST TWO W
     Route: 058
  6. OZEMPIC [Interacting]
     Active Substance: SEMAGLUTIDE
     Dosage: 1 MILLIGRAM, ONCE IN A WEEK, 1 MG, WEEKLY
     Route: 058
  7. SERTRALINE [Interacting]
     Active Substance: SERTRALINE HYDROCHLORIDE
     Indication: Depression
     Dosage: 100 MILLIGRAM, ONCE A DAY, 100 MG, DAILY
     Route: 065
  8. OMEPRAZOLE SODIUM [Interacting]
     Active Substance: OMEPRAZOLE SODIUM
     Indication: Eructation
     Dosage: 40 MILLIGRAM, ONCE A DAY, 40 MG, DAILY
     Route: 048
  9. OMEPRAZOLE SODIUM [Interacting]
     Active Substance: OMEPRAZOLE SODIUM
     Indication: Oesophageal pain
  10. OMEPRAZOLE [Interacting]
     Active Substance: OMEPRAZOLE
     Indication: Eructation
     Dosage: 40 MILLIGRAM, ONCE A DAY, 40 MG, DAILY
     Route: 048
  11. OMEPRAZOLE [Interacting]
     Active Substance: OMEPRAZOLE
     Indication: Oesophageal pain
  12. SEMAGLUTIDE [Interacting]
     Active Substance: SEMAGLUTIDE
     Indication: Obesity
     Dosage: 0.25 MILLIGRAM, ONCE IN A WEEK, 0.25 MG, WEEKLY (FOR THE FIRST TWO WEEKS)
     Route: 058
  13. SEMAGLUTIDE [Interacting]
     Active Substance: SEMAGLUTIDE
     Dosage: 1 MILLIGRAM, ONCE IN A WEEK, 1 MG, WEEKLY
     Route: 058

REACTIONS (9)
  - Oedematous pancreatitis [Recovered/Resolved]
  - Drug interaction [Recovered/Resolved]
  - Product administration error [Unknown]
  - Contraindicated product administered [Unknown]
  - Headache [Recovered/Resolved]
  - Drug titration error [Unknown]
  - Product use in unapproved indication [Unknown]
  - Oesophageal pain [Recovered/Resolved]
  - Eructation [Recovered/Resolved]
